FAERS Safety Report 15019135 (Version 1)
Quarter: 2018Q2

REPORT INFORMATION
  Report Type: Spontaneous
  Country: US (occurrence: US)
  Receive Date: 20180616
  Receipt Date: 20180616
  Transmission Date: 20180711
  Serious: Yes (Other)
  Sender: FDA-Public Use
  Company Number: US-JNJFOC-20180539883

PATIENT
  Age: 82 Year
  Sex: Male
  Weight: 62.6 kg

DRUGS (11)
  1. LUPRON [Concomitant]
     Active Substance: LEUPROLIDE ACETATE
     Route: 030
  2. ALBUTEROL. [Concomitant]
     Active Substance: ALBUTEROL
     Dosage: 2 PUFFS AS NEEDED
     Route: 055
  3. ALBUTEROL. [Concomitant]
     Active Substance: ALBUTEROL
     Dosage: 2.5 MG/3 ML (0.083%)
     Route: 055
  4. CASODEX [Concomitant]
     Active Substance: BICALUTAMIDE
     Route: 048
  5. CENTRUM [Concomitant]
     Active Substance: VITAMINS
     Route: 065
  6. XARELTO [Suspect]
     Active Substance: RIVAROXABAN
     Indication: PRODUCT USED FOR UNKNOWN INDICATION
     Route: 048
  7. TRAZODONE [Concomitant]
     Active Substance: TRAZODONE HYDROCHLORIDE
     Route: 048
  8. TRAMADOL. [Concomitant]
     Active Substance: TRAMADOL
     Route: 048
  9. NORVASC [Concomitant]
     Active Substance: AMLODIPINE BESYLATE
     Route: 048
  10. SOTALOL. [Concomitant]
     Active Substance: SOTALOL
     Route: 048
  11. TESSALON [Concomitant]
     Active Substance: BENZONATATE
     Route: 048

REACTIONS (1)
  - Gastrointestinal haemorrhage [Unknown]
